FAERS Safety Report 6068481-8 (Version None)
Quarter: 2009Q1

REPORT INFORMATION
  Report Type: 
  Country: None (occurrence: None)
  Receive Date: 20090206
  Receipt Date: 20090127
  Transmission Date: 20090719
  Serious: Yes (Hospitalization)
  Sender: FDA-Public Use
  Company Number: FR-PFIZER INC-2009164483

PATIENT

DRUGS (4)
  1. VFEND [Suspect]
     Indication: ASPERGILLOSIS
     Route: 048
     Dates: end: 20080816
  2. PROGRAF [Suspect]
     Dosage: UNK
     Route: 048
     Dates: start: 20060101
  3. CELLCEPT [Suspect]
     Dosage: UNK
     Route: 048
     Dates: start: 20060101
  4. CORTANCYL [Suspect]
     Dosage: UNK
     Route: 048
     Dates: start: 20060101

REACTIONS (2)
  - PHOTOSENSITIVITY REACTION [None]
  - SQUAMOUS CELL CARCINOMA [None]
